FAERS Safety Report 12170276 (Version 3)
Quarter: 2016Q1

REPORT INFORMATION
  Report Type: Report from Study
  Country: US (occurrence: US)
  Receive Date: 20160311
  Receipt Date: 20160323
  Transmission Date: 20160526
  Serious: Yes (Hospitalization, Other)
  Sender: FDA-Public Use
  Company Number: US-HORIZON-HPN-100-014-0011-2016

PATIENT
  Age: 21 Year
  Sex: Male

DRUGS (2)
  1. RAVICTI [Suspect]
     Active Substance: GLYCEROL PHENYLBUTYRATE
     Indication: ARGININOSUCCINATE SYNTHETASE DEFICIENCY
     Dosage: 6 ML, TID
     Dates: start: 20141219, end: 20150122
  2. L-ARGININE [Concomitant]
     Active Substance: ARGININE
     Indication: ALVEOLITIS ALLERGIC
     Dosage: 442 MG/KG DAILY
     Dates: start: 20141111, end: 20150204

REACTIONS (2)
  - Hyperammonaemia [Recovered/Resolved]
  - Respiratory failure [Recovered/Resolved]

NARRATIVE: CASE EVENT DATE: 20150122
